FAERS Safety Report 24053574 (Version 2)
Quarter: 2024Q4

REPORT INFORMATION
  Report Type: Spontaneous
  Country: US (occurrence: US)
  Receive Date: 20240705
  Receipt Date: 20241003
  Transmission Date: 20250114
  Serious: Yes (Death, Other)
  Sender: BRISTOL MYERS SQUIBB
  Company Number: US-BRISTOL-MYERS SQUIBB COMPANY-2024-106677

PATIENT
  Age: 76 Year
  Sex: Male

DRUGS (2)
  1. OPDIVO [Suspect]
     Active Substance: NIVOLUMAB
     Indication: Renal cancer
     Dosage: DOSE : OPDIVO 272 MG    FREQ : EVERY 21 DAYS
     Route: 042
     Dates: start: 20240416
  2. YERVOY [Suspect]
     Active Substance: IPILIMUMAB
     Indication: Renal cancer
     Dosage: DOSE :  YERVOY 91 MG;     FREQ :  EVERY 21 DAYS
     Route: 042
     Dates: start: 20240416

REACTIONS (2)
  - Death [Fatal]
  - Off label use [Unknown]
